FAERS Safety Report 16419579 (Version 1)
Quarter: 2019Q2

REPORT INFORMATION
  Report Type: Spontaneous
  Country: JP (occurrence: JP)
  Receive Date: 20190612
  Receipt Date: 20190612
  Transmission Date: 20190711
  Serious: Yes (Hospitalization, Other)
  Sender: FDA-Public Use
  Company Number: JP-PFIZER INC-2019040395

PATIENT
  Age: 37 Year
  Sex: Female

DRUGS (8)
  1. EFFEXOR [Suspect]
     Active Substance: VENLAFAXINE HYDROCHLORIDE
     Dosage: 75 MG, DAILY
     Route: 048
     Dates: start: 201805
  2. LUNESTA [Concomitant]
     Active Substance: ESZOPICLONE
     Dosage: 2 MG, DAILY
  3. MAGNESIUM OXIDE. [Concomitant]
     Active Substance: MAGNESIUM OXIDE
     Dosage: 1500 MG, DAILY
  4. RIVOTRIL [Concomitant]
     Active Substance: CLONAZEPAM
     Dosage: 1 MG, DAILY
  5. ALPRAZOLAM. [Concomitant]
     Active Substance: ALPRAZOLAM
     Dosage: 0.8 MG, DAILY
  6. EFFEXOR [Suspect]
     Active Substance: VENLAFAXINE HYDROCHLORIDE
     Indication: DEPRESSION
     Dosage: 150 MG, DAILY
  7. EFFEXOR [Suspect]
     Active Substance: VENLAFAXINE HYDROCHLORIDE
     Dosage: 37.5 MG, DAILY
     Dates: end: 20181207
  8. MOSAPRIDE [Concomitant]
     Active Substance: MOSAPRIDE
     Indication: NAUSEA
     Dosage: 15 MG, DAILY

REACTIONS (6)
  - Weight decreased [Recovering/Resolving]
  - Nausea [Recovered/Resolved]
  - Epigastric discomfort [Recovered/Resolved]
  - Urinary retention [Not Recovered/Not Resolved]
  - Anorexia nervosa [Unknown]
  - Condition aggravated [Unknown]

NARRATIVE: CASE EVENT DATE: 201803
